FAERS Safety Report 15589280 (Version 1)
Quarter: 2018Q4

REPORT INFORMATION
  Report Type: Spontaneous
  Country: US (occurrence: US)
  Receive Date: 20181106
  Receipt Date: 20181106
  Transmission Date: 20190205
  Serious: No
  Sender: FDA-Public Use
  Company Number: US-HTU-2018US017674

PATIENT
  Sex: Female

DRUGS (1)
  1. VALCHLOR [Suspect]
     Active Substance: MECHLORETHAMINE
     Indication: MYCOSIS FUNGOIDES
     Dosage: THIN FILM, MONDAY, WEDNESDAY AND FRIDAY
     Route: 061

REACTIONS (4)
  - Pruritus generalised [Unknown]
  - Skin burning sensation [Unknown]
  - Sleep disorder due to a general medical condition [None]
  - Erythema [Unknown]
